FAERS Safety Report 17277404 (Version 1)
Quarter: 2020Q1

REPORT INFORMATION
  Report Type: Spontaneous
  Country: US (occurrence: US)
  Receive Date: 20200116
  Receipt Date: 20200116
  Transmission Date: 20200409
  Serious: Yes (Death, Hospitalization)
  Sender: FDA-Public Use
  Company Number: US-MYLANLABS-2020M1005811

PATIENT
  Age: 30 Year
  Sex: Female

DRUGS (4)
  1. EMTRICITABINE/TENOFOVIR DISOPROXIL FUMARATE [Suspect]
     Active Substance: EMTRICITABINE\TENOFOVIR DISOPROXIL FUMARATE
     Indication: HIV INFECTION
     Dosage: ADMINISTERED DAILY
     Route: 065
  2. DARUNAVIR [Concomitant]
     Active Substance: DARUNAVIR
     Indication: HIV INFECTION
     Dosage: ADMINISTERED DAILY
     Route: 065
  3. RITONAVIR. [Concomitant]
     Active Substance: RITONAVIR
     Indication: HIV INFECTION
     Dosage: ADMINISTERED DAILY
     Route: 065
  4. RALTEGRAVIR. [Concomitant]
     Active Substance: RALTEGRAVIR
     Indication: HIV INFECTION
     Dosage: ADMINISTERED DAILY
     Route: 065

REACTIONS (6)
  - Pulmonary arterial hypertension [Unknown]
  - Transaminases increased [Unknown]
  - Cardiac arrest [Fatal]
  - Acute kidney injury [Unknown]
  - Lactic acidosis [Fatal]
  - Unmasking of previously unidentified disease [Unknown]
